FAERS Safety Report 8973891 (Version 1)
Quarter: 2012Q4

REPORT INFORMATION
  Report Type: 
  Country: US (occurrence: US)
  Receive Date: 20121218
  Receipt Date: 20121218
  Transmission Date: 20130627
  Serious: Yes (Death)
  Sender: FDA-Public Use
  Company Number: US-GLAXOSMITHKLINE-A1005617A

PATIENT
  Age: 71 Year
  Sex: Male

DRUGS (8)
  1. VOTRIENT [Suspect]
     Indication: MALIGNANT SOFT TISSUE NEOPLASM
     Dosage: 800MG Per day
     Route: 048
     Dates: start: 20120719, end: 20121210
  2. MIRTAZAPINE [Concomitant]
  3. CIPRO [Concomitant]
  4. FUROSEMIDE [Concomitant]
  5. OXYCODONE [Concomitant]
  6. ATORVASTATIN CALCIUM [Concomitant]
  7. LEVOXYL [Concomitant]
  8. FENTANYL [Concomitant]

REACTIONS (1)
  - Death [Fatal]
